FAERS Safety Report 8515643 (Version 3)
Quarter: 2012Q4

REPORT INFORMATION
  Report Type: 
  Country: US (occurrence: US)
  Receive Date: 20120417
  Receipt Date: 20120903
  Transmission Date: 20130627
  Serious: Yes (Hospitalization)
  Sender: FDA-Public Use
  Company Number: US-BAYER-2012-034594

PATIENT
  Age: 23 Year
  Sex: Female

DRUGS (19)
  1. YAZ [Suspect]
     Indication: CONTRACEPTION
     Dosage: UNK
     Dates: start: 20081031
  2. YAZ [Suspect]
     Indication: PREMENSTRUAL SYNDROME
  3. ULTRAM [Concomitant]
     Indication: PAIN
     Dosage: 50 mg, Q4HR
     Route: 048
  4. ULTRAM [Concomitant]
     Indication: PAIN
     Dosage: 100 mg, Q4HR
     Route: 048
  5. ULTRAM [Concomitant]
     Indication: PAIN
     Dosage: UNK, PRN
  6. NAPROSYN [Concomitant]
     Dosage: 500 mg, BID
  7. NAPROSYN [Concomitant]
     Dosage: 500 mg, BID
  8. REGLAN [Concomitant]
     Indication: NAUSEA
     Dosage: 5 mg, PRN
  9. FLEXERIL [Concomitant]
     Dosage: 10 mg, TID
  10. IBUPROFEN [Concomitant]
  11. DILAUDID [Concomitant]
  12. MACROBID [Concomitant]
     Indication: URINARY TRACT INFECTION
     Dosage: 100 mg, two times daily for 5 days
  13. LORAZEPAM [Concomitant]
     Indication: ANXIETY
     Dosage: 1 mg, BID as needed
  14. NAPROXEN [Concomitant]
  15. NITROFURANTOIN [Concomitant]
  16. METRONIDAZOLE [Concomitant]
  17. HYDROCODONE W/ACETAMINOPHEN [Concomitant]
     Indication: COUGH
     Dosage: 5 mg,every 4-6 hours as needed
  18. HYDROCODONE W/ACETAMINOPHEN [Concomitant]
     Indication: PAIN
     Dosage: 500 mg, every 4-6 hours as needed
  19. ADVIL [Concomitant]
     Dosage: 200 mg, PRN

REACTIONS (8)
  - Pulmonary embolism [None]
  - Vena cava thrombosis [None]
  - Deep vein thrombosis [Recovered/Resolved]
  - Oedema peripheral [None]
  - Gait disturbance [None]
  - Pain [None]
  - Injury [None]
  - Fear [Unknown]
